FAERS Safety Report 7006552-X (Version None)
Quarter: 2010Q3

REPORT INFORMATION
  Report Type: 
  Country: None (occurrence: None)
  Receive Date: 20100921
  Receipt Date: 20090601
  Transmission Date: 20110219
  Serious: No
  Sender: FDA-Public Use
  Company Number: US-WYE-H09582609

PATIENT
  Sex: Male

DRUGS (2)
  1. XYNTHA [Suspect]
     Indication: FACTOR VIII DEFICIENCY
     Dosage: DOSE NOT PROVIDED FREQUENCY DAILY
     Route: 042
     Dates: start: 20090501
  2. XYNTHA [Suspect]
     Indication: PROPHYLAXIS

REACTIONS (1)
  - URTICARIA [None]
